FAERS Safety Report 6461916-8 (Version None)
Quarter: 2009Q4

REPORT INFORMATION
  Report Type: 
  Country: None (occurrence: None)
  Receive Date: 20091130
  Receipt Date: 20091125
  Transmission Date: 20100525
  Serious: Yes (Death, Hospitalization)
  Sender: FDA-Public Use
  Company Number: PHHY2009BR25474

PATIENT
  Sex: Female

DRUGS (4)
  1. STALEVO 100 [Suspect]
     Indication: PARKINSON'S DISEASE
     Dosage: 1 DF, PER DAY
     Route: 048
     Dates: start: 20050101, end: 20081201
  2. STALEVO 100 [Suspect]
     Dosage: 3 DF, PER DAY
     Route: 048
  3. ACETYLSALICYLIC ACID [Concomitant]
     Dosage: UNK
  4. CARBIDOPA-LEVODOPA [Concomitant]
     Dosage: UNK

REACTIONS (2)
  - DEATH [None]
  - FEELING ABNORMAL [None]
